FAERS Safety Report 16936960 (Version 2)
Quarter: 2019Q4

REPORT INFORMATION
  Report Type: Spontaneous
  Country: FR (occurrence: FR)
  Receive Date: 20191018
  Receipt Date: 20191218
  Transmission Date: 20200122
  Serious: Yes (Hospitalization)
  Sender: FDA-Public Use
  Company Number: NVSC2019FR008032

PATIENT
  Age: 20 Year
  Sex: Female

DRUGS (1)
  1. ADALIMUMAB [Suspect]
     Active Substance: ADALIMUMAB
     Indication: CROHN^S DISEASE
     Dosage: UNK
     Route: 058

REACTIONS (5)
  - Rash pustular [Recovering/Resolving]
  - Arthralgia [Recovering/Resolving]
  - Neuropathy peripheral [Unknown]
  - Henoch-Schonlein purpura [Recovered/Resolved]
  - Purpura [Recovering/Resolving]
